FAERS Safety Report 12403600 (Version 2)
Quarter: 2017Q3

REPORT INFORMATION
  Report Type: Spontaneous
  Country: US (occurrence: US)
  Receive Date: 20160525
  Receipt Date: 20170818
  Transmission Date: 20171127
  Serious: Yes (Other)
  Sender: FDA-Public Use
  Company Number: US-ASTRAZENECA-2016SE54030

PATIENT
  Age: 995 Month
  Sex: Female
  Weight: 48.5 kg

DRUGS (1)
  1. TUDORZA PRESSAIR [Suspect]
     Active Substance: ACLIDINIUM BROMIDE
     Indication: LUNG DISORDER
     Route: 055
     Dates: start: 201504

REACTIONS (7)
  - Product use issue [Unknown]
  - Memory impairment [Unknown]
  - Pulmonary fibrosis [Unknown]
  - Product quality issue [Unknown]
  - Cerebrovascular accident [Unknown]
  - Off label use [Unknown]
  - Lung disorder [Unknown]

NARRATIVE: CASE EVENT DATE: 201503
